FAERS Safety Report 9017036 (Version 1)
Quarter: 2013Q1

REPORT INFORMATION
  Report Type: Spontaneous
  Country: DE (occurrence: DE)
  Receive Date: 20130117
  Receipt Date: 20130117
  Transmission Date: 20140127
  Serious: Yes (Other)
  Sender: FDA-Public Use
  Company Number: PHHY2012DE116924

PATIENT
  Age: 60 Year
  Sex: Female
  Weight: 62 kg

DRUGS (3)
  1. AFINITOR [Suspect]
     Indication: BREAST CANCER
     Dosage: 10 MG, PER DAY
     Route: 048
     Dates: start: 20121128
  2. AFINITOR [Suspect]
     Dosage: REDUCED DOSE
  3. EXEMESTAN [Concomitant]

REACTIONS (2)
  - Asthma [Recovering/Resolving]
  - Bronchospasm [Recovering/Resolving]
